FAERS Safety Report 21141226 (Version 9)
Quarter: 2022Q4

REPORT INFORMATION
  Report Type: Report from Study
  Country: ES (occurrence: None)
  Receive Date: 20220728
  Receipt Date: 20221207
  Transmission Date: 20230113
  Serious: Yes (Hospitalization)
  Sender: FDA-Public Use
  Company Number: ES-ROCHE-3126361

PATIENT
  Age: 75 Year
  Sex: Male
  Weight: 74.1 kg

DRUGS (16)
  1. OBINUTUZUMAB [Suspect]
     Active Substance: OBINUTUZUMAB
     Indication: Follicular lymphoma
     Dosage: DATE OF MOST RECENT DOSE OF OBINUTUZUMAB PRIOR TO SAE ONSET 12/APR/2022
     Route: 042
     Dates: start: 20191211
  2. OMEPRAZOLE [Concomitant]
     Active Substance: OMEPRAZOLE
     Indication: Gastrointestinal disorder prophylaxis
     Dates: start: 20191211
  3. PREGABALIN [Concomitant]
     Active Substance: PREGABALIN
     Indication: Pain
     Dates: start: 20200313
  4. ACETAMINOPHEN [Concomitant]
     Active Substance: ACETAMINOPHEN
     Indication: Herpes zoster
     Dates: start: 20200622
  5. GABAPENTIN [Concomitant]
     Active Substance: GABAPENTIN
     Indication: Back pain
     Dates: start: 20200218, end: 20200313
  6. METAMIZOLE [Concomitant]
     Active Substance: METAMIZOLE
     Indication: Back pain
     Dates: start: 20200218, end: 20200313
  7. VALACYCLOVIR HYDROCHLORIDE [Concomitant]
     Active Substance: VALACYCLOVIR HYDROCHLORIDE
     Indication: Herpes zoster
     Dates: start: 20200422, end: 20200531
  8. GRANISETRON [Concomitant]
     Active Substance: GRANISETRON
     Indication: Prophylaxis of nausea and vomiting
     Dates: start: 20200221, end: 20200221
  9. GRANISETRON [Concomitant]
     Active Substance: GRANISETRON
     Dates: start: 20200313, end: 20200313
  10. GRANISETRON [Concomitant]
     Active Substance: GRANISETRON
     Dates: start: 20200403, end: 20200403
  11. GRANISETRON [Concomitant]
     Active Substance: GRANISETRON
     Dates: start: 20191211, end: 20191211
  12. GRANISETRON [Concomitant]
     Active Substance: GRANISETRON
     Dates: start: 20200103, end: 20200103
  13. GRANISETRON [Concomitant]
     Active Substance: GRANISETRON
     Dates: start: 20191218, end: 20191218
  14. CALCIFEDIOL [Concomitant]
     Active Substance: CALCIFEDIOL
     Indication: Vitamin D deficiency
  15. NAPROXEN [Concomitant]
     Active Substance: NAPROXEN
     Dates: start: 20211221
  16. DEXCHLORPHENIRAMINE [Concomitant]
     Active Substance: DEXCHLORPHENIRAMINE

REACTIONS (1)
  - COVID-19 [Recovered/Resolved]

NARRATIVE: CASE EVENT DATE: 20220614
